FAERS Safety Report 9827332 (Version 1)
Quarter: 2013Q4

REPORT INFORMATION
  Report Type: Spontaneous
  Country: US (occurrence: None)
  Receive Date: 20131120
  Receipt Date: 20131120
  Transmission Date: 20140711
  Serious: Yes (Hospitalization)
  Sender: FDA-Public Use
  Company Number: 1000048837

PATIENT
  Sex: Female

DRUGS (1)
  1. VIIBRYD [Suspect]
     Route: 048
     Dates: start: 2012, end: 2012

REACTIONS (2)
  - Palpitations [None]
  - Diarrhoea [None]
